FAERS Safety Report 4696283-3 (Version None)
Quarter: 2005Q2

REPORT INFORMATION
  Report Type: 
  Country: None (occurrence: None)
  Receive Date: 20050620
  Receipt Date: 20050601
  Transmission Date: 20051028
  Serious: Yes (Hospitalization)
  Sender: FDA-Public Use
  Company Number: CXT-US-05-00021

PATIENT
  Age: 76 Year
  Sex: Female

DRUGS (2)
  1. CARTIA XT [Suspect]
     Indication: HYPERTENSION
     Dosage: 180MG PO QD
     Route: 048
     Dates: start: 20050330, end: 20050403
  2. DILTIAZEM IMMEDIATE-RELEASE [Suspect]
     Indication: HYPERTENSION
     Dosage: 60MG TID
     Dates: start: 20050316, end: 20050329

REACTIONS (19)
  - ABDOMINAL MASS [None]
  - ALANINE AMINOTRANSFERASE INCREASED [None]
  - APHONIA [None]
  - ASPARTATE AMINOTRANSFERASE INCREASED [None]
  - BRADYCARDIA [None]
  - CHOLELITHIASIS [None]
  - DEHYDRATION [None]
  - DISCOMFORT [None]
  - ELECTROCARDIOGRAM POOR R-WAVE PROGRESSION [None]
  - ERYTHEMA MULTIFORME [None]
  - HYDRONEPHROSIS [None]
  - HYPERSENSITIVITY [None]
  - ILL-DEFINED DISORDER [None]
  - INGUINAL HERNIA [None]
  - PAIN [None]
  - PANCREATITIS [None]
  - PYREXIA [None]
  - SKIN EXFOLIATION [None]
  - SWELLING [None]
